FAERS Safety Report 4339511-6 (Version None)
Quarter: 2004Q2

REPORT INFORMATION
  Report Type: 
  Country: None (occurrence: None)
  Receive Date: 20040415
  Receipt Date: 20040402
  Transmission Date: 20050107
  Serious: Yes (Life-Threatening, Hospitalization)
  Sender: FDA-Public Use
  Company Number: PHBS2004CA04558

PATIENT
  Age: 51 Year
  Sex: Female

DRUGS (18)
  1. NEORAL [Suspect]
     Indication: RENAL AND PANCREAS TRANSPLANT
     Dosage: 100 MG, BID
     Route: 048
  2. SIMVASTATIN [Suspect]
     Indication: HYPERCHOLESTEROLAEMIA
     Dosage: 20 MG, QD
     Route: 048
     Dates: start: 20021201
  3. BIAXIN XL [Suspect]
     Indication: COUGH
     Dosage: 1 G, QD
     Route: 048
     Dates: start: 20030216, end: 20030223
  4. AZATHIOPRINE [Concomitant]
     Dosage: 75 MG, QD
     Route: 048
  5. PREDNISONE [Concomitant]
     Dosage: 2.5 MG, QD
     Route: 048
  6. ATENOLOL [Concomitant]
     Dosage: 25 MG, QD
     Route: 048
  7. ISOSORBIDE [Concomitant]
     Dosage: 120 MG, QD
     Route: 048
  8. AAS [Concomitant]
     Dosage: 325 MG, QD
     Route: 048
  9. SODIUM BICARBONATE [Concomitant]
     Dosage: 1.5 G, BID
     Route: 048
  10. CALCIUM CARBONATE [Concomitant]
     Dosage: 500 MG, BID
     Route: 048
  11. VITAMIN D [Concomitant]
     Dosage: 800 IU, QD
     Route: 048
  12. ALENDRONATE SODIUM [Concomitant]
     Dosage: 70 MG, QW
     Route: 048
  13. VITAMIN E [Concomitant]
     Dosage: 400 IU, QD
     Route: 048
  14. CLONAZEPAM [Concomitant]
     Dosage: .5 MG, QD
     Route: 048
  15. ALPRAZOLAM [Concomitant]
     Dosage: .5 MG, QD
     Route: 048
  16. ACETAMINOPHEN [Concomitant]
     Dosage: 1 G EVERY 4 H/PRN
     Route: 048
  17. NORFLOXACIN [Concomitant]
     Dosage: 400 MG, QD
     Route: 048
  18. AVELOX [Concomitant]
     Dosage: 400 MG, QD
     Route: 048
     Dates: start: 20030224, end: 20030306

REACTIONS (12)
  - BLOOD CREATINE PHOSPHOKINASE INCREASED [None]
  - BLOOD CREATININE INCREASED [None]
  - COUGH [None]
  - DIFFICULTY IN WALKING [None]
  - DRUG INTERACTION [None]
  - DRUG LEVEL INCREASED [None]
  - FATIGUE [None]
  - HYPERCHOLESTEROLAEMIA [None]
  - INFECTION [None]
  - MUSCULAR WEAKNESS [None]
  - RENAL FAILURE ACUTE [None]
  - RHABDOMYOLYSIS [None]
